FAERS Safety Report 16031069 (Version 4)
Quarter: 2019Q2

REPORT INFORMATION
  Report Type: Spontaneous
  Country: US (occurrence: US)
  Receive Date: 20190304
  Receipt Date: 20190524
  Transmission Date: 20190711
  Serious: Yes (Other)
  Sender: FDA-Public Use
  Company Number: US-ASTRAZENECA-2018SF26757

PATIENT
  Sex: Female

DRUGS (34)
  1. NEXIUM [Suspect]
     Active Substance: ESOMEPRAZOLE MAGNESIUM
     Route: 048
  2. PRILOSEC [Suspect]
     Active Substance: OMEPRAZOLE MAGNESIUM
     Route: 048
  3. LIPITOR [Concomitant]
     Active Substance: ATORVASTATIN CALCIUM
     Dates: start: 20070319
  4. NIFEDIAC CC [Concomitant]
     Active Substance: NIFEDIPINE
     Dates: start: 20080820
  5. NEXIUM 24HR [Suspect]
     Active Substance: ESOMEPRAZOLE MAGNESIUM
     Route: 048
  6. NEXIUM 24HR [Suspect]
     Active Substance: ESOMEPRAZOLE MAGNESIUM
     Route: 048
     Dates: start: 20140324, end: 20160131
  7. PREVACID [Suspect]
     Active Substance: LANSOPRAZOLE
     Route: 065
  8. TYLENOL [Concomitant]
     Active Substance: ACETAMINOPHEN
  9. FLUTICASONE. [Concomitant]
     Active Substance: FLUTICASONE
  10. PREVACID 24 HR [Suspect]
     Active Substance: LANSOPRAZOLE
     Route: 065
  11. ZOSTAVAX [Concomitant]
     Active Substance: VARICELLA-ZOSTER VIRUS STRAIN OKA/MERCK LIVE ANTIGEN
     Dates: start: 20070321
  12. FINASTERIDE. [Concomitant]
     Active Substance: FINASTERIDE
  13. GLUCOSAMINE [Concomitant]
     Active Substance: GLUCOSAMINE
  14. NEXIUM 24HR [Suspect]
     Active Substance: ESOMEPRAZOLE MAGNESIUM
     Route: 048
  15. FLUTICASONE. [Concomitant]
     Active Substance: FLUTICASONE
     Dates: start: 20080806
  16. ASPIRIN. [Concomitant]
     Active Substance: ASPIRIN
  17. TERAZOSIN [Concomitant]
     Active Substance: TERAZOSIN\TERAZOSIN HYDROCHLORIDE
     Dates: start: 20070125
  18. XIBROM [Concomitant]
     Active Substance: BROMFENAC SODIUM
     Dates: start: 20101101
  19. IBUPROFEN. [Concomitant]
     Active Substance: IBUPROFEN
     Dates: start: 20101203
  20. NIACIN. [Concomitant]
     Active Substance: NIACIN
  21. PRILOSEC [Suspect]
     Active Substance: OMEPRAZOLE MAGNESIUM
     Route: 048
     Dates: start: 20100101, end: 20140324
  22. PRILOSEC [Suspect]
     Active Substance: OMEPRAZOLE MAGNESIUM
     Route: 065
     Dates: start: 20120829
  23. PRILOSEC OTC [Suspect]
     Active Substance: OMEPRAZOLE MAGNESIUM
     Route: 048
  24. TAMSULOSIN [Concomitant]
     Active Substance: TAMSULOSIN
     Dates: start: 20100716
  25. AZOPT [Concomitant]
     Active Substance: BRINZOLAMIDE
     Dates: start: 20101110
  26. PRILOSEC [Suspect]
     Active Substance: OMEPRAZOLE MAGNESIUM
     Route: 048
  27. PRILOSEC OTC [Suspect]
     Active Substance: OMEPRAZOLE MAGNESIUM
     Route: 048
  28. PREVACID [Suspect]
     Active Substance: LANSOPRAZOLE
     Route: 065
  29. RANITIDINE. [Concomitant]
     Active Substance: RANITIDINE
     Dates: start: 20070319
  30. MELATONIN [Concomitant]
     Active Substance: MELATONIN
  31. PRILOSEC OTC [Suspect]
     Active Substance: OMEPRAZOLE MAGNESIUM
     Route: 048
     Dates: start: 20100101, end: 20140324
  32. PREVACID [Suspect]
     Active Substance: LANSOPRAZOLE
     Route: 065
     Dates: start: 20100101, end: 20140324
  33. LISINOPRIL. [Concomitant]
     Active Substance: LISINOPRIL
     Dates: start: 20070124
  34. FINASTERIDE. [Concomitant]
     Active Substance: FINASTERIDE
     Dates: start: 20070209

REACTIONS (2)
  - Renal injury [Unknown]
  - Chronic kidney disease [Unknown]
